FAERS Safety Report 21547418 (Version 2)
Quarter: 2022Q4

REPORT INFORMATION
  Report Type: Spontaneous
  Country: US (occurrence: None)
  Receive Date: 20221103
  Receipt Date: 20221220
  Transmission Date: 20230113
  Serious: Yes (Other)
  Sender: FDA-Public Use
  Company Number: 2022A359489

PATIENT
  Age: 31 Year
  Sex: Female
  Weight: 95.3 kg

DRUGS (1)
  1. PULMICORT FLEXHALER [Suspect]
     Active Substance: BUDESONIDE
     Indication: Asthma
     Route: 055

REACTIONS (9)
  - Pulmonary embolism [Unknown]
  - Cardiac failure [Unknown]
  - Stomatitis [Unknown]
  - Influenza [Unknown]
  - Asthma [Unknown]
  - Cough [Unknown]
  - Wrong technique in device usage process [Unknown]
  - Product use issue [Unknown]
  - Device malfunction [Unknown]

NARRATIVE: CASE EVENT DATE: 20170101
